FAERS Safety Report 4607440-6 (Version None)
Quarter: 2005Q1

REPORT INFORMATION
  Report Type: 
  Country: None (occurrence: None)
  Receive Date: 20050314
  Receipt Date: 20050301
  Transmission Date: 20050727
  Serious: Yes (Hospitalization)
  Sender: FDA-Public Use
  Company Number: SE-ROCHE-397352

PATIENT
  Age: 22 Year
  Sex: Male

DRUGS (1)
  1. ROACCUTANE [Suspect]
     Indication: ACNE
     Dosage: TAKEN DAILY. DOSING REGIMEN STATED AS 80 MG.
     Route: 048
     Dates: start: 20010815, end: 20020115

REACTIONS (2)
  - ENDOCRINE NEOPLASM MALIGNANT [None]
  - GOITRE [None]
